FAERS Safety Report 17946470 (Version 1)
Quarter: 2020Q2

REPORT INFORMATION
  Report Type: Spontaneous
  Country: PT (occurrence: PT)
  Receive Date: 20200626
  Receipt Date: 20200626
  Transmission Date: 20200714
  Serious: Yes (Other)
  Sender: FDA-Public Use
  Company Number: PT-AUROBINDO-AUR-APL-2019-010191

PATIENT
  Age: 74 Year
  Sex: Male

DRUGS (1)
  1. NAPROXEN. [Suspect]
     Active Substance: NAPROXEN
     Indication: PRODUCT USED FOR UNKNOWN INDICATION
     Dosage: UNK
     Route: 065

REACTIONS (5)
  - Eosinophilia [Recovered/Resolved]
  - Drug hypersensitivity [Recovering/Resolving]
  - Bronchospasm [Recovering/Resolving]
  - Urticaria [Recovering/Resolving]
  - Asthma [Recovering/Resolving]
